FAERS Safety Report 11871819 (Version 2)
Quarter: 2017Q4

REPORT INFORMATION
  Report Type: Report from Study
  Country: DE (occurrence: DE)
  Receive Date: 20151228
  Receipt Date: 20171227
  Transmission Date: 20180320
  Serious: Yes (Hospitalization, Other)
  Sender: FDA-Public Use
  Company Number: DE-BRISTOL-MYERS SQUIBB COMPANY-BMS-2015-089020

PATIENT
  Age: 61 Year
  Sex: Male

DRUGS (1)
  1. ABATACEPT [Suspect]
     Active Substance: ABATACEPT
     Indication: RHEUMATOID ARTHRITIS
     Dosage: 125 MG, Q2WK
     Route: 058

REACTIONS (7)
  - Shunt thrombosis [Not Recovered/Not Resolved]
  - Rheumatoid lung [Unknown]
  - Cardiac failure [Unknown]
  - Pleural effusion [Unknown]
  - Respiratory failure [Unknown]
  - Left ventricular failure [Unknown]
  - Off label use [Unknown]

NARRATIVE: CASE EVENT DATE: 20150603
